FAERS Safety Report 9729687 (Version 1)
Quarter: 2013Q4

REPORT INFORMATION
  Report Type: Spontaneous
  Country: US (occurrence: US)
  Receive Date: 20131204
  Receipt Date: 20131204
  Transmission Date: 20140711
  Serious: No
  Sender: FDA-Public Use
  Company Number: US-GILEAD-2009-0020998

PATIENT
  Sex: Female
  Weight: 44 kg

DRUGS (16)
  1. LETAIRIS [Suspect]
     Indication: PULMONARY ARTERIAL HYPERTENSION
     Route: 048
     Dates: start: 20090303, end: 20090318
  2. REVATIO [Concomitant]
  3. SIMVASTATIN [Concomitant]
  4. DILTIAZEM [Concomitant]
  5. ENALAPRIL MALEATE [Concomitant]
  6. ASPIRIN [Concomitant]
  7. ALBUTEROL [Concomitant]
  8. IPRATROPIUM BR [Concomitant]
  9. PROVENTIL [Concomitant]
  10. GABAPENTIN [Concomitant]
  11. CELEBREX [Concomitant]
  12. CITALOPRAM HBR [Concomitant]
  13. PROZAC [Concomitant]
  14. PREDNISONE [Concomitant]
  15. LYRICA [Concomitant]
  16. VITAMIN DRINK [Concomitant]

REACTIONS (3)
  - Pain in extremity [Unknown]
  - Local swelling [Unknown]
  - Therapeutic response decreased [Unknown]
